FAERS Safety Report 5841728-6 (Version None)
Quarter: 2008Q3

REPORT INFORMATION
  Report Type: 
  Country: None (occurrence: None)
  Receive Date: 20080812
  Receipt Date: 20080729
  Transmission Date: 20090109
  Serious: Yes (Hospitalization, Disabling, Other)
  Sender: FDA-Public Use
  Company Number: JP-ASTRAZENECA-2008AP06032

PATIENT
  Age: 28836 Day
  Sex: Male

DRUGS (13)
  1. SEROQUEL [Suspect]
     Indication: DELUSION
     Route: 048
  2. SEROQUEL [Suspect]
     Route: 048
     Dates: start: 20050325
  3. SEROQUEL [Suspect]
     Dosage: DRUG RESUMED
     Route: 048
  4. LUVOX [Suspect]
     Indication: DEPRESSION
     Route: 048
     Dates: start: 20051207, end: 20060103
  5. LUVOX [Suspect]
     Route: 048
     Dates: start: 20060104, end: 20060117
  6. LUVOX [Suspect]
     Route: 048
     Dates: start: 20060118, end: 20060207
  7. LUVOX [Suspect]
     Route: 048
     Dates: start: 20060208, end: 20060301
  8. OLANZAPINE [Suspect]
     Indication: PSYCHOTIC DISORDER
  9. DONEPEZIL HCL [Suspect]
     Indication: COGNITIVE DISORDER
  10. MAPROTILINE [Suspect]
  11. NORTRIPTYLINE HCL [Concomitant]
  12. RESPERIDONE [Concomitant]
     Indication: PSYCHOTIC DISORDER
  13. SULPIRIDE [Concomitant]

REACTIONS (5)
  - DRUG INTERACTION [None]
  - EXTRAPYRAMIDAL DISORDER [None]
  - LIBIDO INCREASED [None]
  - URINARY RETENTION [None]
  - VASCULAR DEMENTIA [None]
